FAERS Safety Report 24844278 (Version 2)
Quarter: 2025Q1

REPORT INFORMATION
  Report Type: Report from Study
  Country: US (occurrence: US)
  Receive Date: 20250115
  Receipt Date: 20250304
  Transmission Date: 20250408
  Serious: Yes (Other)
  Sender: AUROBINDO
  Company Number: US-AUROBINDO-AUR-APL-2025-001789

PATIENT
  Sex: Female

DRUGS (2)
  1. PROGESTERONE [Interacting]
     Active Substance: PROGESTERONE
     Indication: Adjuvant therapy
     Route: 065
  2. PRIMIDONE [Interacting]
     Active Substance: PRIMIDONE
     Indication: Catamenial epilepsy
     Route: 065

REACTIONS (2)
  - Epilepsy [Unknown]
  - Drug interaction [Unknown]
